FAERS Safety Report 19526465 (Version 2)
Quarter: 2023Q2

REPORT INFORMATION
  Report Type: Spontaneous
  Country: US (occurrence: US)
  Receive Date: 20210713
  Receipt Date: 20230606
  Transmission Date: 20230722
  Serious: Yes (Death, Other)
  Sender: FDA-Public Use
  Company Number: US-STRIDES ARCOLAB LIMITED-2021SP009319

PATIENT
  Age: 78 Year
  Sex: Male

DRUGS (5)
  1. RANITIDINE [Suspect]
     Active Substance: RANITIDINE
     Indication: Dyspepsia
     Dosage: UNK
     Route: 048
     Dates: start: 198901, end: 201512
  2. RANITIDINE [Suspect]
     Active Substance: RANITIDINE
     Dosage: UNK, RANITIDINE (OVER THE COUNTER)
     Route: 065
     Dates: start: 1989, end: 2015
  3. RANITIDINE [Suspect]
     Active Substance: RANITIDINE
     Dosage: UNK, RANITIDINE (PRESCRIPTION)
     Route: 065
     Dates: start: 1989, end: 2015
  4. RANITIDINE [Suspect]
     Active Substance: RANITIDINE
     Dosage: UNK, ZANTAC (OVER THE COUNTER)
     Route: 065
     Dates: start: 1989, end: 2015
  5. RANITIDINE [Suspect]
     Active Substance: RANITIDINE
     Dosage: UNK, ZANTAC (PRESCRIPTION)
     Route: 065
     Dates: start: 1989, end: 2015

REACTIONS (2)
  - Death [Fatal]
  - Hepatic cancer [Unknown]

NARRATIVE: CASE EVENT DATE: 20200201
